FAERS Safety Report 17510956 (Version 11)
Quarter: 2021Q4

REPORT INFORMATION
  Report Type: Report from Study
  Country: US (occurrence: US)
  Receive Date: 20200306
  Receipt Date: 20211118
  Transmission Date: 20220304
  Serious: Yes (Other)
  Sender: FDA-Public Use
  Company Number: US-NOVARTISPH-NVSC2020US062511

PATIENT
  Age: 51 Year
  Sex: Female

DRUGS (3)
  1. MAYZENT [Suspect]
     Active Substance: SIPONIMOD
     Indication: Multiple sclerosis
     Dosage: 2 MG, QD
     Route: 048
     Dates: start: 20191206
  2. MAYZENT [Suspect]
     Active Substance: SIPONIMOD
     Dosage: 2 MG, QD  (2 MG TABLET 5 DAYS A WEEK)
     Route: 048
     Dates: start: 201912
  3. MAYZENT [Suspect]
     Active Substance: SIPONIMOD
     Dosage: UNK
     Route: 065
     Dates: start: 20211018

REACTIONS (20)
  - Hemiparesis [Not Recovered/Not Resolved]
  - Pneumonia [Unknown]
  - Lymphocyte count decreased [Unknown]
  - Eosinophil count increased [Recovering/Resolving]
  - White blood cell count decreased [Unknown]
  - Fall [Recovering/Resolving]
  - Arthralgia [Not Recovered/Not Resolved]
  - Influenza [Unknown]
  - Joint injury [Recovering/Resolving]
  - Contusion [Recovering/Resolving]
  - Skeletal injury [Recovering/Resolving]
  - Peripheral swelling [Recovering/Resolving]
  - Headache [Recovering/Resolving]
  - Fatigue [Not Recovered/Not Resolved]
  - Pain in extremity [Recovering/Resolving]
  - Wrist fracture [Recovered/Resolved]
  - Bone density decreased [Unknown]
  - Alopecia [Unknown]
  - Feeling abnormal [Unknown]
  - Off label use [Unknown]

NARRATIVE: CASE EVENT DATE: 20191201
